FAERS Safety Report 13654541 (Version 1)
Quarter: 2017Q2

REPORT INFORMATION
  Report Type: Report from Study
  Country: CA (occurrence: CA)
  Receive Date: 20170615
  Receipt Date: 20170615
  Transmission Date: 20170830
  Serious: Yes (Other)
  Sender: FDA-Public Use
  Company Number: CA-TAKEDA-2017TUS012731

PATIENT
  Age: 38 Year
  Sex: Male

DRUGS (1)
  1. VEDOLIZUMAB [Suspect]
     Active Substance: VEDOLIZUMAB
     Indication: CROHN^S DISEASE
     Dosage: 300 MG, UNK
     Route: 042
     Dates: start: 20170419

REACTIONS (6)
  - Acne [Unknown]
  - Diarrhoea [Unknown]
  - Weight increased [Unknown]
  - Surgery [Unknown]
  - Hepatic enzyme increased [Unknown]
  - Anal fistula [Unknown]
